FAERS Safety Report 20503555 (Version 8)
Quarter: 2024Q3

REPORT INFORMATION
  Report Type: Report from Study
  Country: CO (occurrence: CO)
  Receive Date: 20220222
  Receipt Date: 20240808
  Transmission Date: 20241017
  Serious: Yes (Hospitalization, Other)
  Sender: TAKEDA
  Company Number: CO-TAKEDA-2020TUS006276

PATIENT
  Age: 27 Year
  Sex: Female
  Weight: 84 kg

DRUGS (4)
  1. VEDOLIZUMAB [Suspect]
     Active Substance: VEDOLIZUMAB
     Indication: Colitis ulcerative
     Dosage: 300 MILLIGRAM
     Route: 042
     Dates: start: 20190925, end: 20220615
  2. VEDOLIZUMAB [Suspect]
     Active Substance: VEDOLIZUMAB
     Dosage: 300 MILLIGRAM
     Route: 042
     Dates: end: 20240722
  3. VEDOLIZUMAB [Suspect]
     Active Substance: VEDOLIZUMAB
     Indication: Colitis ulcerative
     Dosage: 108 MILLIGRAM, Q2WEEKS
     Route: 058
     Dates: start: 20240801
  4. MESALAMINE [Concomitant]
     Active Substance: MESALAMINE
     Dosage: UNK

REACTIONS (14)
  - Pregnancy [Recovered/Resolved]
  - Premature separation of placenta [Unknown]
  - Malaise [Not Recovered/Not Resolved]
  - Catarrh [Not Recovered/Not Resolved]
  - Weight increased [Unknown]
  - Vaginal haemorrhage [Unknown]
  - Oedema peripheral [Unknown]
  - Abdominal discomfort [Recovering/Resolving]
  - Pain [Recovering/Resolving]
  - Diarrhoea [Recovering/Resolving]
  - Product availability issue [Unknown]
  - Vomiting [Unknown]
  - Influenza [Not Recovered/Not Resolved]
  - Nausea [Unknown]

NARRATIVE: CASE EVENT DATE: 20200101
